FAERS Safety Report 7259464-0 (Version None)
Quarter: 2011Q1

REPORT INFORMATION
  Report Type: 
  Country: None (occurrence: None)
  Receive Date: 20110129
  Receipt Date: 20100819
  Transmission Date: 20110831
  Serious: No
  Sender: FDA-Public Use
  Company Number: US-ABBOTT-10P-163-0664870-00

PATIENT
  Sex: Male

DRUGS (9)
  1. HUMIRA [Suspect]
     Dosage: DAY 2
     Route: 058
  2. HUMIRA [Suspect]
     Indication: CROHN'S DISEASE
     Dosage: DAY 1
     Route: 058
     Dates: start: 20100730
  3. HUMIRA [Suspect]
     Dosage: DAY 15
     Route: 058
  4. PREDNISONE [Concomitant]
     Dosage: 50MG DAILY
  5. PREDNISONE [Concomitant]
     Dosage: 30MG DAILY
  6. HUMIRA [Suspect]
     Dosage: DAY 29
     Route: 058
  7. HUMIRA [Suspect]
     Route: 058
  8. PREDNISONE [Concomitant]
     Dosage: 40MG DAILY
  9. PREDNISONE [Concomitant]
     Indication: PRODUCT USED FOR UNKNOWN INDICATION
     Dosage: DAILY

REACTIONS (2)
  - DYSPEPSIA [None]
  - NAUSEA [None]
